FAERS Safety Report 4767153-7 (Version None)
Quarter: 2005Q3

REPORT INFORMATION
  Report Type: 
  Country: None (occurrence: None)
  Receive Date: 20050909
  Receipt Date: 20050826
  Transmission Date: 20060218
  Serious: Yes (Death, Other)
  Sender: FDA-Public Use
  Company Number: 2005-DE-03429GD

PATIENT
  Age: 64 Year
  Sex: Male

DRUGS (4)
  1. MORPHINE [Suspect]
     Indication: BACK PAIN
     Dosage: DOSE TITRATION FROM 90 MG DAILY TO 510 MG DAILY, GIVEN IN 6 DOSES EVERY 4 HOURS, PO
     Route: 048
  2. ACETAMINOPHEN [Concomitant]
  3. VALPROATE SODIUM [Concomitant]
  4. PAMIDRONATE DISODIUM [Concomitant]

REACTIONS (10)
  - BONE PAIN [None]
  - COGNITIVE DISORDER [None]
  - CONFUSIONAL STATE [None]
  - DRUG TOXICITY [None]
  - LUMBAR VERTEBRAL FRACTURE [None]
  - NEUROPATHIC PAIN [None]
  - NEUROTOXICITY [None]
  - PAIN [None]
  - RIB FRACTURE [None]
  - SOMNOLENCE [None]
